FAERS Safety Report 4389628-5 (Version None)
Quarter: 2004Q2

REPORT INFORMATION
  Report Type: 
  Country: None (occurrence: None)
  Receive Date: 20040629
  Receipt Date: 20031231
  Transmission Date: 20050107
  Serious: Yes (Hospitalization)
  Sender: FDA-Public Use
  Company Number: US-JNJFOC-20040100289

PATIENT
  Age: 23 Year
  Sex: Male

DRUGS (8)
  1. DURAGESIC [Suspect]
     Indication: PAIN
     Dosage: SEE IMAGE
     Dates: start: 20021101, end: 20021101
  2. DURAGESIC [Suspect]
     Indication: PAIN
     Dosage: SEE IMAGE
     Dates: start: 20030801, end: 20031001
  3. DURAGESIC [Suspect]
     Indication: PAIN
     Dosage: SEE IMAGE
     Dates: start: 20031001
  4. NEURONTIN [Concomitant]
  5. XANAX [Concomitant]
  6. EMETROL (EMETROL) [Concomitant]
  7. . [Concomitant]
  8. . [Concomitant]

REACTIONS (4)
  - ABDOMINAL PAIN [None]
  - DRUG WITHDRAWAL SYNDROME [None]
  - NAUSEA [None]
  - PRURITUS [None]
